FAERS Safety Report 10381029 (Version 1)
Quarter: 2014Q3

REPORT INFORMATION
  Report Type: Spontaneous
  Country: US (occurrence: None)
  Receive Date: 20140812
  Receipt Date: 20140812
  Transmission Date: 20150326
  Serious: Yes (Other)
  Sender: FDA-Public Use
  Company Number: None

PATIENT
  Age: 61 Year
  Sex: Male

DRUGS (2)
  1. VELCADE [Suspect]
     Active Substance: BORTEZOMIB
     Indication: PLASMA CELL MYELOMA
  2. REVLIMID [Suspect]
     Active Substance: LENALIDOMIDE
     Indication: PLASMA CELL MYELOMA
     Dates: start: 20130601, end: 20130731

REACTIONS (6)
  - Light chain analysis increased [None]
  - Pneumonia [None]
  - Renal failure acute [None]
  - Drug ineffective [None]
  - Neuropathy peripheral [None]
  - Drug intolerance [None]

NARRATIVE: CASE EVENT DATE: 20140811
